FAERS Safety Report 23093636 (Version 2)
Quarter: 2023Q4

REPORT INFORMATION
  Report Type: Spontaneous
  Country: US (occurrence: US)
  Receive Date: 20231023
  Receipt Date: 20231121
  Transmission Date: 20240109
  Serious: Yes (Other)
  Sender: FDA-Public Use
  Company Number: US-SA-SAC20221219000687

PATIENT
  Age: 51 Year
  Sex: Female

DRUGS (10)
  1. KEVZARA [Suspect]
     Active Substance: SARILUMAB
     Indication: Menopause
     Dosage: 200 MG, QOW
     Route: 058
     Dates: start: 20200512
  2. KEVZARA [Suspect]
     Active Substance: SARILUMAB
     Indication: Rheumatoid arthritis
  3. ATORVASTATIN [Concomitant]
     Active Substance: ATORVASTATIN
     Dosage: UNK
  4. BUPROPION HYDROCHLORIDE [Concomitant]
     Active Substance: BUPROPION HYDROCHLORIDE
     Dosage: UNK
  5. GEMTESA [Concomitant]
     Active Substance: VIBEGRON
     Dosage: UNK
  6. HYDROXYZINE [Concomitant]
     Active Substance: HYDROXYZINE HYDROCHLORIDE
     Dosage: UNK
  7. MOVANTIK [Concomitant]
     Active Substance: NALOXEGOL OXALATE
     Dosage: UNK
  8. PROMETHAZINE [Concomitant]
     Active Substance: PROMETHAZINE HYDROCHLORIDE
     Dosage: UNK
  9. QUETIAPINE [Concomitant]
     Active Substance: QUETIAPINE
     Dosage: UNK
  10. QULIPTA [Concomitant]
     Active Substance: ATOGEPANT
     Dosage: UNK

REACTIONS (3)
  - Kidney infection [Not Recovered/Not Resolved]
  - Pain [Unknown]
  - Product used for unknown indication [Unknown]

NARRATIVE: CASE EVENT DATE: 20200512
